FAERS Safety Report 24889867 (Version 1)
Quarter: 2025Q1

REPORT INFORMATION
  Report Type: Spontaneous
  Country: ES (occurrence: ES)
  Receive Date: 20250127
  Receipt Date: 20250127
  Transmission Date: 20250408
  Serious: Yes (Other)
  Sender: ARGENX BVBA
  Company Number: ES-ARGENX-2025-ARGX-ES000721

PATIENT

DRUGS (1)
  1. VYVGART [Suspect]
     Active Substance: EFGARTIGIMOD ALFA-FCAB
     Indication: Product used for unknown indication
     Route: 058

REACTIONS (2)
  - Myasthenia gravis crisis [Recovering/Resolving]
  - Respiratory tract infection [Recovering/Resolving]
